FAERS Safety Report 4384216-9 (Version None)
Quarter: 2004Q2

REPORT INFORMATION
  Report Type: 
  Country: None (occurrence: None)
  Receive Date: 20040618
  Receipt Date: 20040607
  Transmission Date: 20050107
  Serious: Yes (Other)
  Sender: FDA-Public Use
  Company Number: US-JNJFOC-20040602171

PATIENT
  Age: 61 Year
  Sex: Male

DRUGS (1)
  1. ABCIXIMAB (ABCIXIMAB) INJECTION [Suspect]
     Indication: CORONARY ARTERY DISEASE
     Dosage: INTRAVENOUS
     Route: 042

REACTIONS (2)
  - SERUM SICKNESS [None]
  - THROMBOCYTOPENIA [None]
